FAERS Safety Report 8012547-X (Version None)
Quarter: 2011Q4

REPORT INFORMATION
  Report Type: 
  Country: None (occurrence: None)
  Receive Date: 20111229
  Receipt Date: 20111222
  Transmission Date: 20120403
  Serious: Yes (Hospitalization)
  Sender: FDA-Public Use
  Company Number: PL-BIOGENIDEC-2011BI048257

PATIENT
  Age: 35 Year
  Sex: Male
  Weight: 64 kg

DRUGS (4)
  1. AVONEX [Suspect]
     Indication: MULTIPLE SCLEROSIS
     Dates: start: 20111026
  2. BACLOFEN [Concomitant]
     Indication: MULTIPLE SCLEROSIS
     Dates: start: 20110701
  3. BETASERC [Concomitant]
     Indication: MULTIPLE SCLEROSIS
     Dates: start: 20110701
  4. ESCITALOPRAM [Concomitant]
     Indication: DEPRESSION
     Dates: start: 20100901

REACTIONS (1)
  - EPILEPSY [None]
